FAERS Safety Report 5240758-5 (Version None)
Quarter: 2007Q1

REPORT INFORMATION
  Report Type: 
  Country: None (occurrence: None)
  Receive Date: 20061201
  Receipt Date: 20060929
  Transmission Date: 20070707
  Serious: No
  Sender: FDA-Public Use
  Company Number: 2006PV022240

PATIENT
  Age: 35 Year
  Sex: Female
  Weight: 133.8111 kg

DRUGS (1)
  1. BYETTA [Suspect]
     Indication: INSULIN RESISTANT DIABETES
     Dosage: 5 MCG;BID;SC
     Route: 058
     Dates: start: 20060922

REACTIONS (1)
  - OEDEMA PERIPHERAL [None]
